FAERS Safety Report 8481527-2 (Version None)
Quarter: 2012Q3

REPORT INFORMATION
  Report Type: 
  Country: None (occurrence: None)
  Receive Date: 20120702
  Receipt Date: 20120625
  Transmission Date: 20120928
  Serious: Yes (Other)
  Sender: FDA-Public Use
  Company Number: US-JNJFOC-20120612844

PATIENT
  Sex: Female
  Weight: 71.67 kg

DRUGS (1)
  1. LEVAQUIN [Suspect]
     Indication: BRONCHITIS
     Dosage: A TOTAL OF 9 TIMES FROM 1999 TO 2002
     Route: 048
     Dates: start: 19990101, end: 20020101

REACTIONS (1)
  - RHEUMATOID ARTHRITIS [None]
